FAERS Safety Report 5827399-3 (Version None)
Quarter: 2008Q3

REPORT INFORMATION
  Report Type: 
  Country: None (occurrence: None)
  Receive Date: 20080730
  Receipt Date: 20070711
  Transmission Date: 20090109
  Serious: No
  Sender: FDA-Public Use
  Company Number: US-BAUSCH-2007BL002209

PATIENT
  Age: 53 Year
  Sex: Female

DRUGS (6)
  1. TROPICAMIDE [Suspect]
     Indication: OPHTHALMOLOGICAL EXAMINATION
     Route: 047
     Dates: start: 20070215, end: 20070215
  2. FLUCAINE [Suspect]
     Indication: OPHTHALMOLOGICAL EXAMINATION
     Route: 047
     Dates: start: 20070215, end: 20070215
  3. PHENYLEPHRINE HYDROCHLORIDE [Suspect]
     Indication: OPHTHALMOLOGICAL EXAMINATION
     Route: 047
     Dates: start: 20070215, end: 20070215
  4. REWETTING DROPS [Concomitant]
  5. LIPITOR [Concomitant]
     Indication: BLOOD CHOLESTEROL INCREASED
  6. ASPIRIN [Concomitant]

REACTIONS (2)
  - EYE MOVEMENT DISORDER [None]
  - EYE PAIN [None]
